FAERS Safety Report 21886610 (Version 2)
Quarter: 2023Q1

REPORT INFORMATION
  Report Type: Spontaneous
  Country: US (occurrence: US)
  Receive Date: 20230119
  Receipt Date: 20230211
  Transmission Date: 20230418
  Serious: Yes (Hospitalization, Other)
  Sender: FDA-Public Use
  Company Number: US-TEVA-2023-US-2846652

PATIENT
  Sex: Male

DRUGS (8)
  1. OXYCODONE [Suspect]
     Active Substance: OXYCODONE
     Indication: Back pain
     Dosage: 600 MILLIGRAM DAILY; MAXIMUM DOSE
     Route: 065
  2. LOPERAMIDE [Suspect]
     Active Substance: LOPERAMIDE
     Indication: Drug dependence
     Dosage: 200 MILLIGRAM DAILY; SELF MEDICATED
     Route: 065
  3. LOPERAMIDE [Suspect]
     Active Substance: LOPERAMIDE
     Dosage: 768 MILLIGRAM DAILY; SELF MEDICATED
     Route: 065
  4. VITAMIN C [Concomitant]
     Active Substance: ASCORBIC ACID
     Indication: Prophylaxis
     Dosage: 12,000-14,000 MG
     Route: 065
  5. MAGNESIUM CITRATE [Concomitant]
     Active Substance: MAGNESIUM CITRATE
     Indication: Prophylaxis
     Route: 065
  6. FISH OIL [Concomitant]
     Active Substance: FISH OIL
     Indication: Prophylaxis
     Dosage: OIL
     Route: 065
  7. Centrum multivitamin 2 [Concomitant]
     Indication: Prophylaxis
     Route: 065
  8. ZINC [Concomitant]
     Active Substance: ZINC
     Indication: Prophylaxis
     Route: 065

REACTIONS (6)
  - Long QT syndrome [Unknown]
  - Coronary artery disease [Unknown]
  - Drug withdrawal syndrome [Unknown]
  - Drug dependence [Unknown]
  - Toxicity to various agents [Unknown]
  - Intentional product misuse [Unknown]
